FAERS Safety Report 5016510-2 (Version None)
Quarter: 2006Q2

REPORT INFORMATION
  Report Type: 
  Country: None (occurrence: None)
  Receive Date: 20060531
  Receipt Date: 20060531
  Transmission Date: 20061013
  Serious: Yes (Other)
  Sender: FDA-Public Use
  Company Number: None

PATIENT
  Age: 62 Year
  Sex: Female
  Weight: 97 kg

DRUGS (1)
  1. DEPODUR [Suspect]
     Indication: ANALGESIC EFFECT
     Dosage: 12 MG X 1 EPIDURAL
     Route: 008
     Dates: start: 20060517, end: 20060519

REACTIONS (3)
  - MEDICATION ERROR [None]
  - RESPIRATORY DEPRESSION [None]
  - WRONG TECHNIQUE IN DRUG USAGE PROCESS [None]
